FAERS Safety Report 16246006 (Version 1)
Quarter: 2019Q2

REPORT INFORMATION
  Report Type: Spontaneous
  Country: US (occurrence: US)
  Receive Date: 20190426
  Receipt Date: 20190426
  Transmission Date: 20190711
  Serious: Yes (Hospitalization, Congenital Anomaly, Other)
  Sender: FDA-Public Use
  Company Number: US-ASTRAZENECA-2019SE62200

PATIENT
  Age: 27194 Day
  Sex: Male
  Weight: 65 kg

DRUGS (23)
  1. PROTONIX [Concomitant]
     Active Substance: PANTOPRAZOLE SODIUM
     Route: 048
  2. ZINC SULFATE [Concomitant]
     Active Substance: ZINC SULFATE\ZINC SULFATE ANHYDROUS
     Route: 048
  3. MAGNESIUM OXIDE. [Concomitant]
     Active Substance: MAGNESIUM OXIDE
     Route: 048
  4. ZANTAC [Concomitant]
     Active Substance: RANITIDINE HYDROCHLORIDE
     Route: 048
  5. CALCIUM CARBONATE. [Concomitant]
     Active Substance: CALCIUM CARBONATE
     Route: 048
  6. HEPARIN [Concomitant]
     Active Substance: HEPARIN SODIUM
     Route: 041
  7. IMODIUM [Concomitant]
     Active Substance: LOPERAMIDE HYDROCHLORIDE
     Dosage: 2.0MG AS REQUIRED
     Route: 048
  8. POTASSIUM CHLORIDE. [Concomitant]
     Active Substance: POTASSIUM CHLORIDE
     Route: 048
  9. METOLAZONE. [Concomitant]
     Active Substance: METOLAZONE
     Route: 048
  10. ASPIRIN. [Concomitant]
     Active Substance: ASPIRIN
     Route: 048
  11. TAGRISSO [Suspect]
     Active Substance: OSIMERTINIB
     Route: 048
     Dates: start: 201712
  12. MULTIVITAMIN WITH MINERAL [Concomitant]
     Active Substance: MINERALS\VITAMINS
     Route: 048
  13. BENZONATATE. [Concomitant]
     Active Substance: BENZONATATE
     Dosage: 200.0MG AS REQUIRED
     Route: 048
     Dates: start: 20190412
  14. LORATADINE. [Concomitant]
     Active Substance: LORATADINE
     Route: 048
  15. ALDACTONE [Concomitant]
     Active Substance: SPIRONOLACTONE
     Route: 048
  16. LOVENOX [Concomitant]
     Active Substance: ENOXAPARIN SODIUM
     Dosage: 70.0MG AS REQUIRED
     Route: 058
  17. TOPROL XL [Suspect]
     Active Substance: METOPROLOL SUCCINATE
     Route: 048
  18. ATORVASTATIN [Concomitant]
     Active Substance: ATORVASTATIN
     Route: 048
     Dates: start: 20190418
  19. MIRTAZAPINE. [Concomitant]
     Active Substance: MIRTAZAPINE
     Route: 048
  20. LUNESTA [Concomitant]
     Active Substance: ESZOPICLONE
     Indication: INSOMNIA
     Dosage: 1.0MG AS REQUIRED
     Route: 048
  21. ROBITUSSON DM [Concomitant]
     Dosage: 10.0ML AS REQUIRED
     Route: 048
  22. WARFARIN [Concomitant]
     Active Substance: WARFARIN
     Route: 048
  23. BUMEX [Concomitant]
     Active Substance: BUMETANIDE
     Route: 048

REACTIONS (6)
  - Cerebrovascular accident [Unknown]
  - Gastrointestinal haemorrhage [Recovering/Resolving]
  - Pyrexia [Unknown]
  - Cardiac failure congestive [Unknown]
  - Non-small cell lung cancer [Unknown]
  - Cough [Unknown]

NARRATIVE: CASE EVENT DATE: 20190409
